FAERS Safety Report 8493870-1 (Version None)
Quarter: 2012Q3

REPORT INFORMATION
  Report Type: 
  Country: None (occurrence: None)
  Receive Date: 20120706
  Receipt Date: 20110121
  Transmission Date: 20120928
  Serious: Yes (Other)
  Sender: FDA-Public Use
  Company Number: TR-ROCHE-GNE312140

PATIENT
  Sex: Female
  Weight: 81.087 kg

DRUGS (3)
  1. FLUTICASONE PROPIONATE/SALMETEROL [Concomitant]
     Indication: PRODUCT USED FOR UNKNOWN INDICATION
  2. MONTELUKAST [Concomitant]
     Indication: PRODUCT USED FOR UNKNOWN INDICATION
  3. XOLAIR [Suspect]
     Indication: ASTHMA
     Dosage: 1 DF, 1/MONTH
     Route: 058
     Dates: start: 20101129

REACTIONS (3)
  - HYPERTENSION [None]
  - EPISTAXIS [None]
  - MOUTH HAEMORRHAGE [None]
